FAERS Safety Report 6695383-6 (Version None)
Quarter: 2010Q2

REPORT INFORMATION
  Report Type: 
  Country: None (occurrence: None)
  Receive Date: 20100423
  Receipt Date: 20100423
  Transmission Date: 20101027
  Serious: Yes (Other)
  Sender: FDA-Public Use
  Company Number: None

PATIENT
  Age: 39 Year
  Sex: Female
  Weight: 68.4932 kg

DRUGS (1)
  1. HALDOL [Suspect]
     Indication: PSYCHOTIC DISORDER
     Dosage: 1 MG BID PO
     Route: 048
     Dates: start: 20100303, end: 20100303

REACTIONS (3)
  - AKATHISIA [None]
  - GAIT DISTURBANCE [None]
  - TACHYCARDIA [None]
